FAERS Safety Report 5087365-5 (Version None)
Quarter: 2006Q3

REPORT INFORMATION
  Report Type: 
  Country: None (occurrence: None)
  Receive Date: 20060823
  Receipt Date: 20060823
  Transmission Date: 20061208
  Serious: Yes (Hospitalization)
  Sender: FDA-Public Use
  Company Number: None

PATIENT
  Age: 71 Year
  Sex: Female
  Weight: 58.0604 kg

DRUGS (3)
  1. ASPIRIN [Suspect]
     Dosage: DAILY   PO
     Route: 048
  2. PLAVIX [Suspect]
     Dosage: 75MG   DAILY   PO
     Route: 048
  3. MOBIC [Concomitant]

REACTIONS (4)
  - FACIAL PALSY [None]
  - GAIT DISTURBANCE [None]
  - INTRAVENTRICULAR HAEMORRHAGE [None]
  - THALAMUS HAEMORRHAGE [None]
